FAERS Safety Report 8023925-7 (Version None)
Quarter: 2011Q4

REPORT INFORMATION
  Report Type: 
  Country: None (occurrence: None)
  Receive Date: 20111230
  Receipt Date: 20111212
  Transmission Date: 20120403
  Serious: Yes (Other)
  Sender: FDA-Public Use
  Company Number: JPI-P-018818

PATIENT
  Age: 43 Year
  Sex: Female
  Weight: 47.6277 kg

DRUGS (8)
  1. ACYCLOVIR SODIUM [Concomitant]
  2. XYREM [Suspect]
     Indication: FIBROMYALGIA
     Dosage: ORAL, 10 GM (5 GM,2 IN 1 D),ORAL
     Route: 048
  3. ASCORBIC ACID [Concomitant]
  4. OMEPRAZOLE [Concomitant]
  5. POTASSIUM CHLORIDE [Concomitant]
  6. OXYMORPHONE [Concomitant]
  7. ALPRAZOLAM [Suspect]
     Dosage: ORAL, 3 MG (1 MG,3 IN 1 D),ORAL
     Route: 048
  8. ZINC [Concomitant]

REACTIONS (11)
  - UPPER LIMB FRACTURE [None]
  - FEELING ABNORMAL [None]
  - RHINORRHOEA [None]
  - FALL [None]
  - INSOMNIA [None]
  - MEMORY IMPAIRMENT [None]
  - TREMOR [None]
  - INITIAL INSOMNIA [None]
  - HYPERHIDROSIS [None]
  - FATIGUE [None]
  - LACRIMATION INCREASED [None]
